FAERS Safety Report 6711263-1 (Version None)
Quarter: 2010Q2

REPORT INFORMATION
  Report Type: 
  Country: None (occurrence: None)
  Receive Date: 20100505
  Receipt Date: 20100427
  Transmission Date: 20101027
  Serious: Yes (Hospitalization)
  Sender: FDA-Public Use
  Company Number: JP-BRISTOL-MYERS SQUIBB COMPANY-14978878

PATIENT
  Age: 68 Year
  Sex: Female
  Weight: 60 kg

DRUGS (31)
  1. ERBITUX [Suspect]
     Indication: COLON CANCER
     Dosage: 600 MG 09JAN09; 16JAN-10AP09 400 MG; FROM 24APR09-22MAY09:380 MG 5JUN09,12JUN09
     Route: 042
     Dates: start: 20090109
  2. IRINOTECAN HYDROCHLORIDE [Concomitant]
     Indication: COLON CANCER
     Dosage: 150MG::21AUG-11SEP20091IN1WK;09OCT09;04-04DEC09(1IN1D);18-18DEC09(1IN3WK);08JAN2010(1IN2WK)(21D)
     Route: 042
     Dates: start: 20090821
  3. RESTAMIN [Concomitant]
     Indication: PREMEDICATION
     Dosage: RESTAMIN TABS
     Route: 048
     Dates: start: 20090109
  4. DECADRON [Concomitant]
     Indication: PREMEDICATION
     Dosage: TABS
     Route: 048
     Dates: start: 20090109
  5. RAMELTEON [Concomitant]
     Indication: PROPHYLAXIS OF NAUSEA AND VOMITING
     Dosage: TABS
     Route: 048
     Dates: start: 20090109
  6. RAMELTEON [Concomitant]
     Indication: PREMEDICATION
     Dosage: TABS
     Route: 048
     Dates: start: 20090109
  7. OPALMON [Concomitant]
     Indication: INTERVERTEBRAL DISC PROTRUSION
     Dosage: TABS;15MCG FROM 01AUG07-05NOV09
     Route: 048
     Dates: start: 20070801, end: 20100105
  8. NEUROTROPIN [Concomitant]
     Indication: INTERVERTEBRAL DISC PROTRUSION
     Dosage: 16UNITS DAILY(08AUG08) 5 OTHER
     Route: 048
     Dates: start: 20080808
  9. MYONAL [Concomitant]
     Indication: HYPOAESTHESIA
     Dosage: TABS;UNK-05NOV09
     Route: 048
     Dates: start: 20081007, end: 20090301
  10. MUCOSTA [Concomitant]
     Indication: GASTRITIS
     Dosage: TABS;
     Route: 048
     Dates: end: 20090315
  11. EUGLUCON [Concomitant]
     Indication: DIABETES MELLITUS
     Dosage: TABS
     Route: 048
     Dates: end: 20090705
  12. SEIBULE [Concomitant]
     Indication: DIABETES MELLITUS
     Dosage: TABS
     Route: 048
     Dates: end: 20090705
  13. BEZATOL SR [Concomitant]
     Indication: HYPERLIPIDAEMIA
     Dosage: TABS;400MG
     Route: 048
  14. GASTER D [Concomitant]
     Indication: GASTRITIS
     Dosage: TABS
     Route: 048
  15. AMLODIN [Concomitant]
     Indication: HYPERTENSION
     Dosage: TABS
     Route: 048
  16. CANDESARTAN CILEXETIL [Concomitant]
     Indication: HYPERTENSION
     Dosage: TABS;ALSO 4MG
     Route: 048
  17. EBRANTIL [Concomitant]
     Indication: HYPERTENSION
     Dosage: CAPS, 30 MG
     Route: 048
  18. LOXONIN [Concomitant]
     Indication: BACK PAIN
     Route: 062
  19. LOXONIN [Concomitant]
     Indication: MUSCULOSKELETAL PAIN
     Route: 062
  20. NOVORAPID [Concomitant]
     Indication: DIABETES MELLITUS
     Route: 058
     Dates: start: 20090706
  21. LEVEMIR [Concomitant]
     Indication: DIABETES MELLITUS
     Route: 058
     Dates: start: 20090706
  22. NORVASC [Concomitant]
     Route: 048
     Dates: start: 20090712, end: 20090715
  23. ACINON [Concomitant]
     Indication: GASTRITIS PROPHYLAXIS
     Route: 048
     Dates: start: 20090522, end: 20090605
  24. PARIET [Concomitant]
     Indication: GASTRITIS PROPHYLAXIS
     Dosage: 10MG: 1 IN 1D:28MAY-10JUN09(13D)28JUN-02JUL09(4D) 10MG:2 IN D:11JUN-27JUN(16D03JUL-10JUL09(7D)
     Route: 048
     Dates: start: 20090528, end: 20090710
  25. MAGLAX [Concomitant]
     Indication: CONSTIPATION
     Route: 048
     Dates: start: 20090709, end: 20091120
  26. ZADITEN [Concomitant]
     Indication: CATARACT
     Dosage: EYE DROPS
     Dates: start: 20090814, end: 20090924
  27. HYALEIN [Concomitant]
     Indication: CATARACT
     Dosage: EYE DROPS
     Dates: start: 20090814, end: 20090924
  28. RINDERON [Concomitant]
     Indication: CATARACT
     Dosage: EYE DROPS
     Dates: start: 20090930, end: 20091001
  29. TIMOPTOL [Concomitant]
     Indication: CATARACT
     Dosage: EYE DROPS
     Dates: start: 20090930, end: 20091001
  30. DIAMOX SRC [Concomitant]
     Indication: CATARACT
     Dosage: TABS
     Route: 048
     Dates: start: 20091001, end: 20091001
  31. TATHION [Concomitant]
     Indication: CATARACT
     Dosage: EYE DROPS
     Dates: start: 20091001, end: 20091001

REACTIONS (2)
  - ACNE [None]
  - CATARACT [None]
